FAERS Safety Report 14447982 (Version 1)
Quarter: 2018Q1

REPORT INFORMATION
  Report Type: Spontaneous
  Country: EG (occurrence: EG)
  Receive Date: 20180126
  Receipt Date: 20180126
  Transmission Date: 20180509
  Serious: Yes (Life-Threatening)
  Sender: FDA-Public Use
  Company Number: EG-BAXALTA-2016BLT001846

PATIENT
  Age: 79 Year
  Sex: Male

DRUGS (1)
  1. HUMAN SERUM ALBUMIN; NG [Suspect]
     Active Substance: ALBUMIN HUMAN
     Indication: PRODUCT USED FOR UNKNOWN INDICATION
     Dosage: UNK
     Route: 041

REACTIONS (5)
  - Dyspnoea [Unknown]
  - Chills [Unknown]
  - Delirium [Unknown]
  - Anaphylactic reaction [Unknown]
  - Hypotension [Unknown]
